FAERS Safety Report 23493950 (Version 2)
Quarter: 2024Q1

REPORT INFORMATION
  Report Type: Spontaneous
  Country: US (occurrence: US)
  Receive Date: 20240207
  Receipt Date: 20240228
  Transmission Date: 20240409
  Serious: Yes (Other)
  Sender: FDA-Public Use
  Company Number: US-TEVA-VS-3150743

PATIENT
  Age: 47 Year
  Sex: Male

DRUGS (9)
  1. OXYBUTYNIN [Suspect]
     Active Substance: OXYBUTYNIN\OXYBUTYNIN CHLORIDE
     Indication: Vaginal discharge
     Route: 065
  2. OXYBUTYNIN [Suspect]
     Active Substance: OXYBUTYNIN\OXYBUTYNIN CHLORIDE
     Indication: Vaginal discharge
     Route: 065
  3. EMTRICITABINE\TENOFOVIR DISOPROXIL FUMARATE [Concomitant]
     Active Substance: EMTRICITABINE\TENOFOVIR DISOPROXIL FUMARATE
     Indication: Product used for unknown indication
     Route: 065
  4. GLYCOPYRROLATE [Suspect]
     Active Substance: GLYCOPYRROLATE
     Indication: Vaginal discharge
     Route: 048
  5. GLYCOPYRROLATE [Suspect]
     Active Substance: GLYCOPYRROLATE
     Indication: Vaginal discharge
     Dosage: RECIVED ONLY AS NEEDED ONLY 2 3 TIMES PER MONTH CORRESPONDING WITH INTERCOURSE OR DILATION
     Route: 048
  6. GLYCOPYRROLATE [Suspect]
     Active Substance: GLYCOPYRROLATE
     Indication: Vaginal discharge
     Route: 048
  7. TRAZODONE [Concomitant]
     Active Substance: TRAZODONE HYDROCHLORIDE
     Indication: Product used for unknown indication
     Route: 065
  8. LORATADINE [Concomitant]
     Active Substance: LORATADINE
     Indication: Product used for unknown indication
     Route: 065
  9. PETROLEUM [Suspect]
     Active Substance: PETROLATUM
     Indication: Dermatitis contact
     Dosage: APPLIED JELLY
     Route: 061

REACTIONS (8)
  - Dry eye [Unknown]
  - Intentional product misuse [Unknown]
  - Drug intolerance [Unknown]
  - Treatment noncompliance [Unknown]
  - Drug ineffective [Unknown]
  - Constipation [Unknown]
  - Dry mouth [Unknown]
  - Off label use [Unknown]
